FAERS Safety Report 7916536-2 (Version None)
Quarter: 2011Q4

REPORT INFORMATION
  Report Type: 
  Country: None (occurrence: None)
  Receive Date: 20111116
  Receipt Date: 20111103
  Transmission Date: 20120403
  Serious: Yes (Hospitalization)
  Sender: FDA-Public Use
  Company Number: CH-ELI_LILLY_AND_COMPANY-CH201111001743

PATIENT
  Age: 67 Year
  Sex: Female
  Weight: 65 kg

DRUGS (1)
  1. FORTEO [Suspect]
     Indication: OSTEOPOROSIS
     Dosage: 20 UG, QD
     Route: 058
     Dates: start: 20111018, end: 20111022

REACTIONS (6)
  - HOSPITALISATION [None]
  - NAUSEA [None]
  - DYSPNOEA [None]
  - BRADYCARDIA [None]
  - HYPERTENSION [None]
  - CHEST PAIN [None]
